FAERS Safety Report 10219104 (Version 3)
Quarter: 2014Q4

REPORT INFORMATION
  Report Type: Spontaneous
  Country: US (occurrence: US)
  Receive Date: 20140605
  Receipt Date: 20141009
  Transmission Date: 20150528
  Serious: Yes (Hospitalization)
  Sender: FDA-Public Use
  Company Number: US-INCYTE CORPORATION-2014IN001524

PATIENT
  Age: 76 Year
  Sex: Female
  Weight: 70.3 kg

DRUGS (28)
  1. METOPROLOL TARTRATE. [Concomitant]
     Active Substance: METOPROLOL TARTRATE
  2. ASPIRIN. [Suspect]
     Active Substance: ASPIRIN
     Dosage: NOT SPECIFIED
  3. NITROSTAT [Concomitant]
     Active Substance: NITROGLYCERIN
  4. ALLOPURINOL. [Concomitant]
     Active Substance: ALLOPURINOL
  5. MAGNESIUM [Concomitant]
     Active Substance: MAGNESIUM
  6. CALCIUM [Concomitant]
     Active Substance: CALCIUM
  7. NITROGLYCERINE [Concomitant]
     Active Substance: NITROGLYCERIN
  8. VITAMIN D                          /00107901/ [Concomitant]
     Active Substance: ERGOCALCIFEROL
  9. ZYLOPRIM [Concomitant]
     Active Substance: ALLOPURINOL
  10. JAKAFI [Suspect]
     Active Substance: RUXOLITINIB
     Dosage: 10 MG, BID
     Route: 048
     Dates: start: 20130510
  11. JAKAFI [Suspect]
     Active Substance: RUXOLITINIB
     Dosage: 5 MG, BID
     Route: 048
  12. HYDROCODONE/APAP [Concomitant]
     Active Substance: ACETAMINOPHEN\HYDROCODONE
  13. PROTONIX [Concomitant]
     Active Substance: PANTOPRAZOLE SODIUM
  14. TYLENOL [Concomitant]
     Active Substance: ACETAMINOPHEN
  15. MULTIVITAMIN                       /07504101/ [Concomitant]
     Active Substance: VITAMINS
  16. JAKAFI [Suspect]
     Active Substance: RUXOLITINIB
     Indication: MYELOFIBROSIS
     Dosage: 20 MG, BID
     Route: 048
     Dates: start: 201202
  17. ONGLYZA [Concomitant]
     Active Substance: SAXAGLIPTIN HYDROCHLORIDE
  18. PREDNISONE. [Concomitant]
     Active Substance: PREDNISONE
  19. MUPIROCIN. [Concomitant]
     Active Substance: MUPIROCIN
  20. LASIX [Concomitant]
     Active Substance: FUROSEMIDE
  21. POTASSIUM [Concomitant]
     Active Substance: POTASSIUM
  22. ALBUTEROL                          /00139501/ [Concomitant]
     Active Substance: ALBUTEROL
  23. COUMADIN [Suspect]
     Active Substance: WARFARIN SODIUM
     Dosage: NOT SPECIFIED
  24. MULTAQ [Concomitant]
     Active Substance: DRONEDARONE
  25. JAKAFI [Suspect]
     Active Substance: RUXOLITINIB
     Dosage: 10 MG, BID
     Route: 048
     Dates: start: 201207, end: 201405
  26. CALTRATE                           /00944201/ [Concomitant]
  27. DULERA [Concomitant]
     Active Substance: FORMOTEROL FUMARATE DIHYDRATE\MOMETASONE FUROATE
  28. TOPROL XL [Concomitant]
     Active Substance: METOPROLOL SUCCINATE

REACTIONS (10)
  - Haemorrhage [Recovered/Resolved]
  - Abdominal wall haematoma [Recovered/Resolved]
  - Pneumonia [Recovered/Resolved]
  - Blood creatinine increased [Unknown]
  - Bronchitis [Recovered/Resolved]
  - Blood urea increased [Unknown]
  - Cough [Unknown]
  - Blood count abnormal [Unknown]
  - Pneumonitis [Recovered/Resolved]
  - Bacterial infection [Recovered/Resolved]

NARRATIVE: CASE EVENT DATE: 201403
